FAERS Safety Report 7322047-8 (Version None)
Quarter: 2011Q1

REPORT INFORMATION
  Report Type: 
  Country: None (occurrence: None)
  Receive Date: 20110228
  Receipt Date: 20110223
  Transmission Date: 20110831
  Serious: Yes (Other)
  Sender: FDA-Public Use
  Company Number: HR-ABBOTT-11P-216-0707491-00

PATIENT
  Age: 10 Year
  Sex: Male

DRUGS (1)
  1. VALPROATE SODIUM [Suspect]
     Indication: PARTIAL SEIZURES
     Route: 048
     Dates: start: 20070101, end: 20100101

REACTIONS (4)
  - COGNITIVE DISORDER [None]
  - BREAST DISORDER [None]
  - GASTROINTESTINAL DISORDER [None]
  - WEIGHT INCREASED [None]
